FAERS Safety Report 5457753-3 (Version None)
Quarter: 2007Q3

REPORT INFORMATION
  Report Type: 
  Country: None (occurrence: None)
  Receive Date: 20070918
  Receipt Date: 20070314
  Transmission Date: 20080115
  Serious: Yes (Other)
  Sender: FDA-Public Use
  Company Number: US-ASTRAZENECA-2007UW04938

PATIENT
  Age: 53 Year
  Sex: Male
  Weight: 96.6 kg

DRUGS (4)
  1. SEROQUEL [Suspect]
     Indication: BIPOLAR DISORDER
     Route: 048
     Dates: start: 20020101, end: 20060101
  2. SEROQUEL [Suspect]
     Route: 048
     Dates: start: 20060101
  3. ADDERALL [Concomitant]
  4. EFFEXOR XR [Concomitant]

REACTIONS (9)
  - BLOOD PRESSURE INCREASED [None]
  - CONVULSION [None]
  - DRY MOUTH [None]
  - EXTRASYSTOLES [None]
  - FOOD CRAVING [None]
  - HEART RATE INCREASED [None]
  - PALPITATIONS [None]
  - PRESYNCOPE [None]
  - SCAR [None]
